FAERS Safety Report 6679390-5 (Version None)
Quarter: 2010Q2

REPORT INFORMATION
  Report Type: 
  Country: None (occurrence: None)
  Receive Date: 20100408
  Receipt Date: 20090710
  Transmission Date: 20101027
  Serious: No
  Sender: FDA-Public Use
  Company Number: 2009-00546

PATIENT
  Age: 52 Year
  Sex: Male
  Weight: 90.7194 kg

DRUGS (4)
  1. ZICAM COLD REMEDY NASAL GEL [Suspect]
     Dates: start: 20090101
  2. ZICAM COLD REMEDY GEL SWABS [Suspect]
     Dates: start: 20090101
  3. DIOVAN [Concomitant]
  4. VIAGRA [Concomitant]

REACTIONS (1)
  - ANOSMIA [None]
